FAERS Safety Report 4335852-7 (Version None)
Quarter: 2004Q2

REPORT INFORMATION
  Report Type: 
  Country: None (occurrence: None)
  Receive Date: 20040409
  Receipt Date: 20040324
  Transmission Date: 20050107
  Serious: Yes (Hospitalization)
  Sender: FDA-Public Use
  Company Number: PHFR2004GB01529

PATIENT
  Age: 54 Year
  Sex: Female

DRUGS (7)
  1. FORADIL [Suspect]
     Indication: CHRONIC OBSTRUCTIVE AIRWAYS DISEASE
     Dosage: 2CAPSULES MANE/2CAPSULES NOCTE
     Route: 065
     Dates: start: 20030801
  2. SPIRIVA ^BOEHRINGER INGELHEIM^ [Concomitant]
  3. THEOPHYLLINE [Concomitant]
  4. ALBUTEROL SULFATE [Concomitant]
  5. ORAMORPH SR [Concomitant]
  6. OXYGEN [Concomitant]
  7. VENTOLIN [Concomitant]
     Dosage: PER 2 HOURS
     Dates: end: 20030801

REACTIONS (4)
  - CHOKING [None]
  - FEELING ABNORMAL [None]
  - INCREASED VISCOSITY OF BRONCHIAL SECRETION [None]
  - SUFFOCATION FEELING [None]
